FAERS Safety Report 16019835 (Version 1)
Quarter: 2019Q1

REPORT INFORMATION
  Report Type: Spontaneous
  Country: US (occurrence: US)
  Receive Date: 20190228
  Receipt Date: 20190228
  Transmission Date: 20190418
  Serious: No
  Sender: FDA-Public Use
  Company Number: US-TEVA-2019-US-1018063

PATIENT
  Sex: Female

DRUGS (1)
  1. TORSEMIDE. [Suspect]
     Active Substance: TORSEMIDE
     Indication: DIURETIC THERAPY
     Dosage: 40 MILLIGRAM DAILY;
     Route: 048
     Dates: start: 2015

REACTIONS (1)
  - Pollakiuria [Unknown]
